FAERS Safety Report 6766001-3 (Version None)
Quarter: 2010Q2

REPORT INFORMATION
  Report Type: 
  Country: None (occurrence: None)
  Receive Date: 20100611
  Receipt Date: 20100604
  Transmission Date: 20101027
  Serious: Yes (Death, Hospitalization)
  Sender: FDA-Public Use
  Company Number: A0791326A

PATIENT
  Age: 83 Year
  Sex: Female
  Weight: 104.5 kg

DRUGS (5)
  1. AVANDIA [Suspect]
     Dosage: 2MG TWICE PER DAY
     Route: 048
     Dates: start: 20040101, end: 20070701
  2. ATACAND [Concomitant]
  3. ZOCOR [Concomitant]
  4. NAMENDA [Concomitant]
  5. LEXAPRO [Concomitant]

REACTIONS (5)
  - CARDIAC FAILURE [None]
  - DYSPNOEA [None]
  - JOINT SWELLING [None]
  - MYOCARDIAL INFARCTION [None]
  - RESPIRATORY ARREST [None]
